FAERS Safety Report 10861620 (Version 2)
Quarter: 2016Q1

REPORT INFORMATION
  Report Type: Spontaneous
  Country: US (occurrence: US)
  Receive Date: 20150223
  Receipt Date: 20160322
  Transmission Date: 20160525
  Serious: No
  Sender: FDA-Public Use
  Company Number: US-JNJFOC-20150208927

PATIENT
  Age: 55 Year
  Sex: Male

DRUGS (2)
  1. RISPERDAL [Suspect]
     Active Substance: RISPERIDONE
     Indication: BIPOLAR DISORDER
     Route: 048
     Dates: start: 2014, end: 20141119
  2. RISPERDAL [Suspect]
     Active Substance: RISPERIDONE
     Indication: BIPOLAR DISORDER
     Dosage: IN NVARYING DOSES OF 1 MG AND 2 MG
     Route: 048
     Dates: start: 2008, end: 2011

REACTIONS (6)
  - Dysphemia [Unknown]
  - Galactorrhoea [Unknown]
  - Amnesia [Unknown]
  - Gynaecomastia [Unknown]
  - Abnormal weight gain [Unknown]
  - Extrapyramidal disorder [Unknown]

NARRATIVE: CASE EVENT DATE: 2014
